FAERS Safety Report 7116707-1 (Version None)
Quarter: 2010Q4

REPORT INFORMATION
  Report Type: 
  Country: None (occurrence: None)
  Receive Date: 20101122
  Receipt Date: 20101112
  Transmission Date: 20110411
  Serious: Yes (Life-Threatening, Hospitalization, Other)
  Sender: FDA-Public Use
  Company Number: JP-TEVA-255473USA

PATIENT
  Age: 30 Year
  Sex: Female

DRUGS (1)
  1. PIMOZIDE TABLETS [Suspect]
     Indication: TIC
     Route: 048

REACTIONS (7)
  - CARDIO-RESPIRATORY ARREST [None]
  - DEMENTIA [None]
  - HYPOXIC-ISCHAEMIC ENCEPHALOPATHY [None]
  - OFF LABEL USE [None]
  - OVERDOSE [None]
  - VENTRICULAR FIBRILLATION [None]
  - VENTRICULAR TACHYCARDIA [None]
